FAERS Safety Report 7810925-2 (Version None)
Quarter: 2011Q4

REPORT INFORMATION
  Report Type: 
  Country: None (occurrence: None)
  Receive Date: 20111013
  Receipt Date: 20111011
  Transmission Date: 20120403
  Serious: No
  Sender: FDA-Public Use
  Company Number: US-PFIZER INC-2011243803

PATIENT
  Sex: Female
  Weight: 54.422 kg

DRUGS (2)
  1. EFFEXOR [Suspect]
     Indication: DEPRESSION
     Dosage: 225 MG, DAILY
     Route: 048
     Dates: start: 20080101
  2. EFFEXOR [Suspect]
     Indication: ANXIETY

REACTIONS (1)
  - DRY MOUTH [None]
